FAERS Safety Report 5152249-0 (Version None)
Quarter: 2006Q4

REPORT INFORMATION
  Report Type: 
  Country: None (occurrence: None)
  Receive Date: 20061116
  Receipt Date: 20061109
  Transmission Date: 20070319
  Serious: Yes (Death)
  Sender: FDA-Public Use
  Company Number: CA-JNJFOC-20061102933

PATIENT
  Sex: Male

DRUGS (3)
  1. REMICADE [Suspect]
     Route: 042
  2. REMICADE [Suspect]
     Indication: DRUG USE FOR UNKNOWN INDICATION
     Route: 042
  3. ANTI-TNF [Concomitant]
     Dosage: 2 DIFFERENT ONES

REACTIONS (3)
  - CONDITION AGGRAVATED [None]
  - RASH [None]
  - SARCOIDOSIS [None]
